FAERS Safety Report 4874054-2 (Version None)
Quarter: 2006Q1

REPORT INFORMATION
  Report Type: 
  Country: None (occurrence: None)
  Receive Date: 20060104
  Receipt Date: 20051221
  Transmission Date: 20060701
  Serious: Yes (Hospitalization)
  Sender: FDA-Public Use
  Company Number: 8013897

PATIENT
  Age: 70 Year
  Sex: Male
  Weight: 99 kg

DRUGS (5)
  1. KEPPRA [Suspect]
     Indication: MYOCLONUS
     Dosage: 250 MG 2/D PO
     Route: 048
     Dates: start: 20051101
  2. KLONOPIN [Suspect]
     Indication: MYOCLONUS
     Dosage: 2.5 MG /D PO
     Route: 048
     Dates: start: 20051101
  3. VERAPAMIL [Concomitant]
  4. COUMADIN [Concomitant]
  5. ASPIRIN [Concomitant]

REACTIONS (7)
  - DRUG TOXICITY [None]
  - HAEMODIALYSIS [None]
  - METABOLIC ACIDOSIS [None]
  - NAUSEA [None]
  - RESPIRATORY RATE INCREASED [None]
  - TINNITUS [None]
  - VOMITING [None]
